FAERS Safety Report 4659354-3 (Version None)
Quarter: 2005Q2

REPORT INFORMATION
  Report Type: 
  Country: None (occurrence: None)
  Receive Date: 20050510
  Receipt Date: 20050429
  Transmission Date: 20051028
  Serious: Yes (Death, Hospitalization)
  Sender: FDA-Public Use
  Company Number: 03P-114-0239963-00

PATIENT
  Age: 79 Year
  Sex: Female
  Weight: 55 kg

DRUGS (17)
  1. HUMIRA [Suspect]
     Indication: RHEUMATOID ARTHRITIS
     Dosage: 40 MG, 1 IN 2 WK, SUBCUTANEOUS
     Route: 058
     Dates: start: 20030207, end: 20031013
  2. METHOTREXATE [Concomitant]
  3. HYDROCHLOROTHIAZIDE [Concomitant]
  4. PREDNISONE [Concomitant]
  5. BUMETANIDE [Concomitant]
  6. CARDURA [Concomitant]
  7. PERINDOPRIL [Concomitant]
  8. ACENOCOUMAROL [Concomitant]
  9. PARACETAMOL [Concomitant]
  10. AZATHIOPRINE [Concomitant]
  11. LEFLUNOMIDE [Concomitant]
  12. FOLIC ACID [Concomitant]
  13. PANTOPRAZOLE SODIUM [Concomitant]
  14. HYDROXYCHLOROQUINE SULFATE [Concomitant]
  15. SULFASALAZINE [Concomitant]
  16. AUROTHIOGLUCOSE [Concomitant]
  17. SOTALOL [Concomitant]

REACTIONS (21)
  - ALBUMIN URINE PRESENT [None]
  - ARTHRALGIA [None]
  - BLOOD PRESSURE SYSTOLIC INCREASED [None]
  - ELECTROCARDIOGRAM QRS COMPLEX PROLONGED [None]
  - FALL [None]
  - HEART RATE IRREGULAR [None]
  - INTERNATIONAL NORMALISED RATIO INCREASED [None]
  - JOINT INJURY [None]
  - KIDNEY SMALL [None]
  - MYOCARDIAL INFARCTION [None]
  - NAUSEA [None]
  - NEPHROSCLEROSIS [None]
  - ORAL INTAKE REDUCED [None]
  - OSTEOARTHRITIS [None]
  - PULMONARY ARTERIAL PRESSURE INCREASED [None]
  - PYREXIA [None]
  - RED BLOOD CELLS URINE [None]
  - RENAL FAILURE [None]
  - URINARY TRACT INFECTION [None]
  - VENTRICULAR HYPERTROPHY [None]
  - WHITE BLOOD CELLS URINE POSITIVE [None]
